FAERS Safety Report 9866418 (Version 1)
Quarter: 2014Q1

REPORT INFORMATION
  Report Type: Report from Study
  Country: HN (occurrence: HN)
  Receive Date: 20140204
  Receipt Date: 20140204
  Transmission Date: 20141002
  Serious: Yes (Death)
  Sender: FDA-Public Use
  Company Number: HN-ROCHE-1342264

PATIENT
  Age: 59 Year
  Sex: Female

DRUGS (3)
  1. BONVIVA [Suspect]
     Indication: OSTEOPOROSIS
     Route: 048
     Dates: start: 20070501
  2. COREG [Suspect]
     Indication: HYPERTENSION
     Route: 065
  3. ALDACTONE A [Concomitant]
     Indication: HYPERTENSION

REACTIONS (2)
  - Myocardial infarction [Fatal]
  - Cardiomegaly [Unknown]
